FAERS Safety Report 8499801 (Version 2)
Quarter: 2014Q3

REPORT INFORMATION
  Report Type: Spontaneous
  Country: US (occurrence: US)
  Receive Date: 20120409
  Receipt Date: 20140715
  Transmission Date: 20150326
  Serious: Yes (Other)
  Sender: FDA-Public Use
  Company Number: US-ROCHE-1056118

PATIENT
  Sex: Male

DRUGS (1)
  1. ACCUTANE [Suspect]
     Active Substance: ISOTRETINOIN
     Indication: ACNE
     Route: 065
     Dates: start: 20090130, end: 20090605

REACTIONS (9)
  - Skin papilloma [Unknown]
  - Alanine aminotransferase increased [Unknown]
  - Blood alkaline phosphatase increased [Unknown]
  - Coeliac disease [Unknown]
  - Lip dry [Unknown]
  - Rash [Unknown]
  - Aspartate aminotransferase increased [Unknown]
  - Crohn^s disease [Unknown]
  - Blood triglycerides increased [Unknown]
